FAERS Safety Report 25345044 (Version 2)
Quarter: 2025Q2

REPORT INFORMATION
  Report Type: Spontaneous
  Country: US (occurrence: US)
  Receive Date: 20250522
  Receipt Date: 20250618
  Transmission Date: 20250716
  Serious: No
  Sender: ROCHE
  Company Number: US-ROCHE-10000286562

PATIENT
  Age: 81 Year
  Sex: Male
  Weight: 99.79 kg

DRUGS (5)
  1. VABYSMO [Suspect]
     Active Substance: FARICIMAB-SVOA
     Indication: Retinal vein occlusion
     Route: 050
     Dates: start: 20250502
  2. VABYSMO [Suspect]
     Active Substance: FARICIMAB-SVOA
     Indication: Macular oedema
  3. VABYSMO [Suspect]
     Active Substance: FARICIMAB-SVOA
     Indication: Pseudophakia
  4. VABYSMO [Suspect]
     Active Substance: FARICIMAB-SVOA
     Indication: Borderline glaucoma
  5. ATORVASTATIN CALCIUM [Concomitant]
     Active Substance: ATORVASTATIN CALCIUM
     Route: 048
     Dates: start: 20250505

REACTIONS (16)
  - Influenza like illness [Recovered/Resolved]
  - Ocular hyperaemia [Recovered/Resolved]
  - Pain [Unknown]
  - Pyrexia [Unknown]
  - Neutrophil count increased [Unknown]
  - Blood bilirubin increased [Unknown]
  - Conjunctival haemorrhage [Unknown]
  - Eye irritation [Unknown]
  - Abdominal pain upper [Unknown]
  - Myalgia [Unknown]
  - Dysphonia [Unknown]
  - Confusional state [Unknown]
  - White blood cell count increased [Unknown]
  - Mean cell volume increased [Unknown]
  - Mean cell haemoglobin increased [Unknown]
  - Monocyte count increased [Unknown]

NARRATIVE: CASE EVENT DATE: 20250502
